FAERS Safety Report 9220372 (Version 1)
Quarter: 2013Q2

REPORT INFORMATION
  Report Type: Spontaneous
  Country: US (occurrence: None)
  Receive Date: 20130408
  Receipt Date: 20130408
  Transmission Date: 20140414
  Serious: No
  Sender: FDA-Public Use
  Company Number: DL2013-0236

PATIENT
  Age: 33 Year
  Sex: Female

DRUGS (3)
  1. MIFEPRISTONE [Suspect]
     Indication: ABORTION INDUCED
     Dosage: 200 MG, ORAL?1/23/13
     Route: 048
     Dates: start: 20130123
  2. MISOPROSTOL [Suspect]
     Dosage: 800 MCG, BUCCAL?1/24/13
     Route: 002
     Dates: start: 20130124
  3. DOXYCYCLINE [Concomitant]

REACTIONS (3)
  - Abortion incomplete [None]
  - Dizziness [None]
  - Muscle spasms [None]
